FAERS Safety Report 7505345-4 (Version None)
Quarter: 2011Q2

REPORT INFORMATION
  Report Type: 
  Country: None (occurrence: None)
  Receive Date: 20110420
  Receipt Date: 20110224
  Transmission Date: 20111010
  Serious: Yes (Hospitalization)
  Sender: FDA-Public Use
  Company Number: PNT2-2008-00006

PATIENT
  Age: 28 Year
  Sex: Female
  Weight: 104.8 kg

DRUGS (8)
  1. SPD476 VS PLACEBO (CODE NOT BROKEN) TABLET [Suspect]
     Indication: DIVERTICULITIS
     Dosage: 4 DF, 1X/DAY:QD AM, ORAL
     Route: 048
     Dates: start: 20080702
  2. DEPO-PROVERA [Concomitant]
  3. CARAFATE [Concomitant]
  4. AMBIEN [Concomitant]
  5. SYNTHROID [Concomitant]
  6. DICYCLOMINE /00068601/ (DICYCLOVERINE) [Concomitant]
  7. PRILOSEC /00661203/ (OMEPRAZOLE MAGNESIUM) [Concomitant]
  8. PHENERGAN /00033002/ (PROMETHAZINE HYDROCHLORIDE) [Concomitant]

REACTIONS (4)
  - ABDOMINAL PAIN UPPER [None]
  - NAUSEA [None]
  - ABDOMINAL PAIN LOWER [None]
  - VOMITING [None]
